FAERS Safety Report 17857609 (Version 3)
Quarter: 2020Q3

REPORT INFORMATION
  Report Type: Spontaneous
  Country: ES (occurrence: ES)
  Receive Date: 20200604
  Receipt Date: 20200729
  Transmission Date: 20201103
  Serious: Yes (Other)
  Sender: FDA-Public Use
  Company Number: ALC2020ES004027

PATIENT

DRUGS (6)
  1. TOBRADEX [Suspect]
     Active Substance: DEXAMETHASONE\TOBRAMYCIN
     Indication: CONJUNCTIVITIS
     Dosage: UNK UNK, TID
  2. ARTIFICIAL TEARS (POLYVINYL ALCOHOL) [Suspect]
     Active Substance: POLYVINYL ALCOHOL
     Indication: CONJUNCTIVITIS VIRAL
     Dosage: UNK
     Route: 047
     Dates: start: 201111
  3. BETADINE [Suspect]
     Active Substance: POVIDONE-IODINE
     Indication: CONJUNCTIVITIS VIRAL
     Dosage: UNK (WASH, EVERY 3?4 HOURS)
     Dates: start: 201911, end: 201911
  4. MAXIDEX [Suspect]
     Active Substance: DEXAMETHASONE
     Dosage: EVEY 12 HOURS FOR 5 DAYS
     Dates: start: 201911
  5. MAXIDEX [Suspect]
     Active Substance: DEXAMETHASONE
     Indication: CONJUNCTIVITIS VIRAL
     Dosage: EVERY 6 HOURS FOR 5 DAYS
     Dates: start: 201911
  6. SALINE [SODIUM CHLORIDE] [Suspect]
     Active Substance: SODIUM CHLORIDE
     Indication: CONJUNCTIVITIS VIRAL
     Dosage: UNK
     Dates: start: 201911

REACTIONS (9)
  - Photophobia [Not Recovered/Not Resolved]
  - Dry eye [Unknown]
  - Eye irritation [Unknown]
  - Blepharitis [Unknown]
  - Eye pain [Unknown]
  - Cataract [Unknown]
  - Incorrect route of product administration [Unknown]
  - Vision blurred [Not Recovered/Not Resolved]
  - Visual impairment [Not Recovered/Not Resolved]

NARRATIVE: CASE EVENT DATE: 201911
